FAERS Safety Report 5444026-8 (Version None)
Quarter: 2007Q3

REPORT INFORMATION
  Report Type: 
  Country: None (occurrence: None)
  Receive Date: 20070831
  Receipt Date: 20070820
  Transmission Date: 20080115
  Serious: Yes (Death)
  Sender: FDA-Public Use
  Company Number: 2007S1003767

PATIENT
  Age: 19 Year
  Sex: Male

DRUGS (1)
  1. FENTANYL TRANSDERMAL SYSTEM [Suspect]
     Dosage: 100 UG/HR
     Route: 062

REACTIONS (3)
  - OVERDOSE [None]
  - SELF-MEDICATION [None]
  - SUDDEN DEATH [None]
